FAERS Safety Report 14200591 (Version 1)
Quarter: 2017Q4

REPORT INFORMATION
  Report Type: Spontaneous
  Country: US (occurrence: US)
  Receive Date: 20171117
  Receipt Date: 20171117
  Transmission Date: 20180321
  Serious: No
  Sender: FDA-Public Use
  Company Number: US-NOVOPROD-533558

PATIENT
  Age: 41 Year
  Sex: Female
  Weight: 72.56 kg

DRUGS (3)
  1. NOVOLOG [Suspect]
     Active Substance: INSULIN ASPART
     Indication: TYPE 1 DIABETES MELLITUS
     Dosage: 60 U, QD
     Route: 058
     Dates: start: 201702
  2. NOVOLOG [Suspect]
     Active Substance: INSULIN ASPART
     Dosage: 60 U, QD
     Route: 058
     Dates: start: 20170212
  3. NOVOLOG [Suspect]
     Active Substance: INSULIN ASPART
     Dosage: REPEATED BOLUSES
     Route: 058
     Dates: start: 201702

REACTIONS (3)
  - Drug intolerance [Recovered/Resolved]
  - Product quality issue [Recovered/Resolved]
  - Blood glucose increased [Recovered/Resolved]

NARRATIVE: CASE EVENT DATE: 20170217
